FAERS Safety Report 23576556 (Version 2)
Quarter: 2024Q1

REPORT INFORMATION
  Report Type: Report from Study
  Country: US (occurrence: US)
  Receive Date: 20240228
  Receipt Date: 20240325
  Transmission Date: 20240409
  Serious: Yes (Other)
  Sender: FDA-Public Use
  Company Number: US-ALNYLAM PHARMACEUTICALS, INC.-ALN-2024-001129

PATIENT

DRUGS (2)
  1. GIVLAARI [Suspect]
     Active Substance: GIVOSIRAN SODIUM
     Indication: Porphyria acute
     Dosage: UNK, MONTHLY
     Route: 058
     Dates: start: 20240102, end: 20240102
  2. GIVLAARI [Suspect]
     Active Substance: GIVOSIRAN SODIUM
     Dosage: 234.1 MILLIGRAM, MONTHLY
     Route: 058
     Dates: start: 20240319, end: 20240319

REACTIONS (2)
  - Porphyria acute [Unknown]
  - Liver function test increased [Recovered/Resolved]
